FAERS Safety Report 9567910 (Version 2)
Quarter: 2013Q3

REPORT INFORMATION
  Report Type: Spontaneous
  Country: US (occurrence: US)
  Receive Date: 20130930
  Receipt Date: 20130930
  Transmission Date: 20140515
  Serious: No
  Sender: FDA-Public Use
  Company Number: US-AMGEN-USASP2012061795

PATIENT
  Age: 61 Year
  Sex: Female
  Weight: 63.49 kg

DRUGS (12)
  1. ENBREL [Suspect]
     Indication: RHEUMATOID ARTHRITIS
     Dosage: 50 MG, QWK
     Route: 058
     Dates: end: 201203
  2. GLUCOSAMINE [Concomitant]
     Dosage: UNK
  3. CALCIUM [Concomitant]
     Dosage: UNK
  4. VITAMIN K                          /07504001/ [Concomitant]
     Dosage: UNK
  5. MAGNESIUM [Concomitant]
     Dosage: 200 MG, UNK
  6. VITAMIN D                          /00107901/ [Concomitant]
     Dosage: UNK
  7. VITAMIN A                          /00056001/ [Concomitant]
     Dosage: UNK
  8. PREVACID [Concomitant]
     Dosage: 15 MG, UNK
  9. WELLBUTRIN [Concomitant]
     Dosage: 100 MG, UNK
  10. SYNTHROID [Concomitant]
     Dosage: 150 MG, UNK
  11. GLUCOSAMINE + CHONDROITIN          /01430901/ [Concomitant]
     Dosage: 250-200
  12. K                                  /00031401/ [Concomitant]
     Dosage: 100 MUG, UNK

REACTIONS (3)
  - Increased tendency to bruise [Unknown]
  - Herpes zoster [Unknown]
  - Sinusitis [Unknown]
